FAERS Safety Report 18958599 (Version 1)
Quarter: 2021Q1

REPORT INFORMATION
  Report Type: Spontaneous
  Country: US (occurrence: US)
  Receive Date: 20210302
  Receipt Date: 20210302
  Transmission Date: 20210420
  Serious: No
  Sender: FDA-Public Use
  Company Number: US-ASTRAZENECA-2021A035649

PATIENT
  Age: 67 Year
  Sex: Male

DRUGS (1)
  1. LYNPARZA [Suspect]
     Active Substance: OLAPARIB
     Indication: PROSTATE CANCER
     Route: 048
     Dates: start: 20210125

REACTIONS (7)
  - Muscle spasms [Unknown]
  - Confusional state [Unknown]
  - Influenza like illness [Unknown]
  - Decreased appetite [Unknown]
  - Nausea [Unknown]
  - Hypersomnia [Unknown]
  - Dysgeusia [Unknown]
